FAERS Safety Report 24703384 (Version 1)
Quarter: 2024Q4

REPORT INFORMATION
  Report Type: Report from Study
  Country: UY (occurrence: UY)
  Receive Date: 20241205
  Receipt Date: 20241205
  Transmission Date: 20250114
  Serious: Yes (Hospitalization, Other)
  Sender: ABBVIE
  Company Number: UY-ABBVIE-5985892

PATIENT
  Age: 33 Year
  Sex: Female

DRUGS (1)
  1. RINVOQ [Suspect]
     Active Substance: UPADACITINIB
     Indication: Psoriatic arthropathy
     Dosage: FORM STRENGTH: 15 MILLIGRAM
     Route: 048
     Dates: start: 20240827, end: 20241027

REACTIONS (13)
  - Tooth fracture [Unknown]
  - Pyrexia [Recovered/Resolved]
  - Oropharyngeal pain [Unknown]
  - Mobility decreased [Unknown]
  - Pelvic pain [Unknown]
  - Ear injury [Unknown]
  - Pathogen resistance [Unknown]
  - Urinary tract infection [Unknown]
  - Acarodermatitis [Unknown]
  - Lymphadenitis [Unknown]
  - Swelling face [Unknown]
  - Gingivitis [Unknown]
  - Pyrexia [Unknown]

NARRATIVE: CASE EVENT DATE: 20240101
